FAERS Safety Report 25268374 (Version 3)
Quarter: 2025Q3

REPORT INFORMATION
  Report Type: Spontaneous
  Country: US (occurrence: US)
  Receive Date: 20250505
  Receipt Date: 20250811
  Transmission Date: 20251020
  Serious: No
  Sender: GLAXOSMITHKLINE
  Company Number: US-GSK-US2025AMR054158

PATIENT

DRUGS (10)
  1. NUCALA [Suspect]
     Active Substance: MEPOLIZUMAB
     Indication: Asthma
  2. NUCALA [Suspect]
     Active Substance: MEPOLIZUMAB
     Indication: Osteoarthritis
  3. NUCALA [Suspect]
     Active Substance: MEPOLIZUMAB
     Indication: Arthralgia
  4. NUCALA [Suspect]
     Active Substance: MEPOLIZUMAB
     Indication: Menopause
  5. NUCALA [Suspect]
     Active Substance: MEPOLIZUMAB
     Indication: Asthma
  6. NUCALA [Suspect]
     Active Substance: MEPOLIZUMAB
     Indication: Nocturia
  7. NUCALA [Suspect]
     Active Substance: MEPOLIZUMAB
     Indication: Haematuria
  8. NUCALA [Suspect]
     Active Substance: MEPOLIZUMAB
     Indication: Hydronephrosis
  9. NUCALA [Suspect]
     Active Substance: MEPOLIZUMAB
     Indication: Chronic sinusitis
  10. NUCALA [Suspect]
     Active Substance: MEPOLIZUMAB
     Indication: Rhinitis allergic

REACTIONS (1)
  - Off label use [Unknown]
